FAERS Safety Report 11171297 (Version 1)
Quarter: 2015Q2

REPORT INFORMATION
  Report Type: Spontaneous
  Country: US (occurrence: US)
  Receive Date: 20150608
  Receipt Date: 20150608
  Transmission Date: 20150821
  Serious: No
  Sender: FDA-Public Use
  Company Number: US-PFIZER INC-2015184885

PATIENT
  Sex: Male

DRUGS (1)
  1. LIPITOR [Suspect]
     Active Substance: ATORVASTATIN CALCIUM
     Dosage: UNK
     Dates: start: 2015

REACTIONS (4)
  - Nausea [Unknown]
  - Myalgia [Unknown]
  - Dysuria [Unknown]
  - Pain [Unknown]

NARRATIVE: CASE EVENT DATE: 2015
